FAERS Safety Report 15043813 (Version 2)
Quarter: 2018Q3

REPORT INFORMATION
  Report Type: Spontaneous
  Country: FR (occurrence: FR)
  Receive Date: 20180621
  Receipt Date: 20180726
  Transmission Date: 20181010
  Serious: Yes (Hospitalization)
  Sender: FDA-Public Use
  Company Number: FR-EISAI MEDICAL RESEARCH-EC-2018-041632

PATIENT
  Age: 13 Year
  Sex: Female
  Weight: 49 kg

DRUGS (8)
  1. FYCOMPA [Suspect]
     Active Substance: PERAMPANEL
     Indication: SEVERE MYOCLONIC EPILEPSY OF INFANCY
     Route: 048
     Dates: start: 20180418, end: 20180501
  2. FYCOMPA [Suspect]
     Active Substance: PERAMPANEL
     Route: 048
     Dates: start: 20180502, end: 20180531
  3. EPITOMAX [Concomitant]
     Active Substance: TOPIRAMATE
     Route: 048
     Dates: end: 20180620
  4. EPITOMAX [Concomitant]
     Active Substance: TOPIRAMATE
     Route: 048
     Dates: start: 20180705, end: 2018
  5. EPITOMAX [Concomitant]
     Active Substance: TOPIRAMATE
     Route: 048
     Dates: start: 20180621, end: 20180704
  6. ADVIL [Concomitant]
     Active Substance: IBUPROFEN
     Indication: MIGRAINE
  7. EPITOMAX [Concomitant]
     Active Substance: TOPIRAMATE
     Indication: EPILEPSY
     Route: 048
     Dates: start: 20170606
  8. EPITOMAX [Concomitant]
     Active Substance: TOPIRAMATE
     Route: 048

REACTIONS (5)
  - Suicidal ideation [Not Recovered/Not Resolved]
  - Depression [Not Recovered/Not Resolved]
  - Hostility [Not Recovered/Not Resolved]
  - Aggression [Not Recovered/Not Resolved]
  - Anger [Not Recovered/Not Resolved]

NARRATIVE: CASE EVENT DATE: 20180530
